FAERS Safety Report 7868504-7 (Version None)
Quarter: 2011Q4

REPORT INFORMATION
  Report Type: 
  Country: None (occurrence: None)
  Receive Date: 20111028
  Receipt Date: 20101213
  Transmission Date: 20120403
  Serious: No
  Sender: FDA-Public Use
  Company Number: US-AMGEN-USASP2010008815

PATIENT
  Age: 43 Year
  Sex: Female
  Weight: 61.224 kg

DRUGS (4)
  1. NAPROXEN [Concomitant]
     Dosage: 375 MG, UNK
  2. ENBREL [Suspect]
     Indication: PRODUCT USED FOR UNKNOWN INDICATION
     Dosage: 50 MG, QWK
     Route: 058
  3. FOLIC ACID [Concomitant]
     Dosage: 1 MG, UNK
  4. METHOTREXATE [Concomitant]
     Dosage: 2.5 MG, UNK

REACTIONS (2)
  - INJECTION SITE ERYTHEMA [None]
  - INJECTION SITE MASS [None]
